FAERS Safety Report 17423841 (Version 2)
Quarter: 2020Q1

REPORT INFORMATION
  Report Type: Spontaneous
  Country: AU (occurrence: AU)
  Receive Date: 20200217
  Receipt Date: 20200227
  Transmission Date: 20200409
  Serious: Yes (Death, Other)
  Sender: FDA-Public Use
  Company Number: AU-AMGEN-AUSSP2020024640

PATIENT

DRUGS (6)
  1. MESNA. [Concomitant]
     Active Substance: MESNA
     Dosage: UNK UNK, QD, (INFUSION OVER 2-3 H DAILY FOR 3 CONSECUTIVE DAYS)
     Route: 042
  2. FILGRASTIM [Suspect]
     Active Substance: FILGRASTIM
     Dosage: 10 MICROGRAM/KILOGRAM
     Route: 065
  3. FILGRASTIM [Suspect]
     Active Substance: FILGRASTIM
     Indication: HAEMATOPOIETIC STEM CELL MOBILISATION
     Dosage: 5 MICROGRAM/KILOGRAM, QD
     Route: 065
  4. IFOSFAMIDE. [Concomitant]
     Active Substance: IFOSFAMIDE
     Indication: LYMPHOMA
     Dosage: 5000 MILLIGRAM/SQ. METER
     Route: 042
  5. CARBOPLATIN. [Concomitant]
     Active Substance: CARBOPLATIN
     Indication: LYMPHOMA
     Dosage: 800 MILLIGRAM, (5 X AUC ON DAY 1)
     Route: 042
  6. ETOPOSIDE. [Concomitant]
     Active Substance: ETOPOSIDE
     Indication: LYMPHOMA
     Dosage: 100 MILLIGRAM/SQ. METER, QD (DAYS 1-3 OVER 30 MIN)
     Route: 042

REACTIONS (5)
  - Disease progression [Fatal]
  - Intra-abdominal haemorrhage [Fatal]
  - Infection [Fatal]
  - Drug ineffective [Unknown]
  - Graft versus host disease [Fatal]
